FAERS Safety Report 4823902-0 (Version None)
Quarter: 2005Q4

REPORT INFORMATION
  Report Type: 
  Country: None (occurrence: None)
  Receive Date: 20051107
  Receipt Date: 20051027
  Transmission Date: 20060501
  Serious: Yes (Other)
  Sender: FDA-Public Use
  Company Number: 2005148645

PATIENT
  Age: 74 Year
  Sex: Female

DRUGS (5)
  1. LYRICA [Suspect]
     Indication: LUMBAR RADICULOPATHY
     Dosage: 150 MG (50 MG, 3 IN 1 D), ORAL
     Route: 048
     Dates: start: 20050908, end: 20050909
  2. BENICAR [Concomitant]
  3. NAPROSYN [Concomitant]
  4. GLUCOSAMINE (GLUCOSAMINE) [Concomitant]
  5. TYLENOL [Concomitant]

REACTIONS (4)
  - COGNITIVE DISORDER [None]
  - DEPRESSED LEVEL OF CONSCIOUSNESS [None]
  - DRUG HYPERSENSITIVITY [None]
  - INCONTINENCE [None]
